FAERS Safety Report 7652946-9 (Version None)
Quarter: 2011Q3

REPORT INFORMATION
  Report Type: 
  Country: None (occurrence: None)
  Receive Date: 20110803
  Receipt Date: 20110722
  Transmission Date: 20111222
  Serious: Yes (Other)
  Sender: FDA-Public Use
  Company Number: GB-JNJFOC-20110711175

PATIENT
  Age: 34 Year
  Sex: Male

DRUGS (2)
  1. REGAINE EXTRA STRENGTH [Suspect]
     Route: 061
  2. REGAINE EXTRA STRENGTH [Suspect]
     Indication: PRODUCT USED FOR UNKNOWN INDICATION
     Route: 061
     Dates: start: 20110301

REACTIONS (4)
  - DISCOMFORT [None]
  - SWELLING [None]
  - TESTICULAR MASS [None]
  - TESTICULAR PAIN [None]
